FAERS Safety Report 4990812-8 (Version None)
Quarter: 2006Q2

REPORT INFORMATION
  Report Type: 
  Country: None (occurrence: None)
  Receive Date: 20060427
  Receipt Date: 20060412
  Transmission Date: 20061013
  Serious: Yes (Other)
  Sender: FDA-Public Use
  Company Number: 06-000274

PATIENT
  Age: 71 Year
  Sex: Female

DRUGS (6)
  1. TAXLONEX (CALCIPOTRIENE, BETAMETHASONE DIPROPIONATE) OINTMENT [Suspect]
     Indication: PSORIASIS
     Dosage: 0.005/0.064%, TOPICAL
     Route: 061
     Dates: start: 20060210, end: 20060220
  2. PREVISCAN (FLUINDIONE) [Concomitant]
  3. DIGOXIN [Concomitant]
  4. TENORDATE (ATENOLOL, NIFEDIPINE) [Concomitant]
  5. FENOFIBRATE [Concomitant]
  6. ALDALIX (SPIRONOLACTONE, FUROSEMIDE) [Concomitant]

REACTIONS (1)
  - INTERNATIONAL NORMALISED RATIO INCREASED [None]
